FAERS Safety Report 6049557-8 (Version None)
Quarter: 2009Q1

REPORT INFORMATION
  Report Type: 
  Country: None (occurrence: None)
  Receive Date: 20090123
  Receipt Date: 20090112
  Transmission Date: 20090719
  Serious: Yes (Other)
  Sender: FDA-Public Use
  Company Number: US-PFIZER INC-2008096095

PATIENT
  Age: 25 Year
  Sex: Male

DRUGS (8)
  1. VARENICLINE TARTRATE [Suspect]
     Indication: SMOKING CESSATION THERAPY
     Dates: start: 20070301, end: 20071101
  2. ZIPRASIDONE [Concomitant]
     Indication: PARANOIA
  3. ZIPRASIDONE [Concomitant]
     Indication: PSYCHOTIC DISORDER
  4. HALOPERIDOL [Concomitant]
     Indication: PARANOIA
  5. HALOPERIDOL [Concomitant]
     Indication: PSYCHOTIC DISORDER
  6. ESCITALOPRAM [Concomitant]
     Indication: OBSESSIVE-COMPULSIVE DISORDER
     Dosage: 30 MG
  7. ESCITALOPRAM [Concomitant]
     Indication: DEPRESSION
  8. CARBAMAZEPINE [Concomitant]
     Indication: CONVULSION

REACTIONS (5)
  - ABNORMAL BEHAVIOUR [None]
  - AGGRESSION [None]
  - DEPRESSION [None]
  - HALLUCINATION, AUDITORY [None]
  - PARANOIA [None]
